FAERS Safety Report 9074719 (Version 1)
Quarter: 2013Q1

REPORT INFORMATION
  Report Type: Spontaneous
  Country: US (occurrence: US)
  Receive Date: 20130129
  Receipt Date: 20130129
  Transmission Date: 20140127
  Serious: No
  Sender: FDA-Public Use
  Company Number: US-ABBOTT-12P-163-0932912-00

PATIENT
  Age: 47 Year
  Sex: Female
  Weight: 79.45 kg

DRUGS (4)
  1. HUMIRA 40 MG/0.8 ML PEN [Suspect]
     Indication: RHEUMATOID ARTHRITIS
     Route: 058
     Dates: start: 2003
  2. PREVACID [Concomitant]
     Indication: GASTRIC DISORDER
  3. TEGRETOL [Concomitant]
     Indication: TRIGEMINAL NEURALGIA
  4. PREMARIN [Concomitant]
     Indication: MENOPAUSE

REACTIONS (3)
  - Cough [Recovered/Resolved]
  - Injection site pain [Recovered/Resolved]
  - Bronchitis [Recovered/Resolved]
